FAERS Safety Report 9111084 (Version 1)
Quarter: 2013Q1

REPORT INFORMATION
  Report Type: Spontaneous
  Country: US (occurrence: US)
  Receive Date: 20130219
  Receipt Date: 20130219
  Transmission Date: 20140127
  Serious: No
  Sender: FDA-Public Use
  Company Number: US-BRISTOL-MYERS SQUIBB COMPANY-16978348

PATIENT
  Age: 67 Year
  Sex: Female

DRUGS (1)
  1. ORENCIA [Suspect]
     Route: 042

REACTIONS (6)
  - Fungal infection [Unknown]
  - Sinusitis [Unknown]
  - Ear infection [Unknown]
  - Gastric infection [Unknown]
  - Weight decreased [Unknown]
  - Pharyngitis [Unknown]
